FAERS Safety Report 9743130 (Version 1)
Quarter: 2013Q4

REPORT INFORMATION
  Report Type: Spontaneous
  Country: US (occurrence: US)
  Receive Date: 20131210
  Receipt Date: 20131210
  Transmission Date: 20140711
  Serious: No
  Sender: FDA-Public Use
  Company Number: US-GILEAD-2009-0024931

PATIENT
  Sex: Female
  Weight: 120.2 kg

DRUGS (14)
  1. LETAIRIS [Suspect]
     Indication: PULMONARY ARTERIAL HYPERTENSION
     Route: 048
     Dates: start: 20090826
  2. LASIX [Concomitant]
  3. VASOTEC [Concomitant]
  4. LIPITOR [Concomitant]
  5. LOPRESSOR [Concomitant]
  6. AMLODIPINE BESYLATE [Concomitant]
  7. ASPIRIN [Concomitant]
  8. REVATIO [Concomitant]
  9. KLONOPIN [Concomitant]
  10. AMBIEN CR [Concomitant]
  11. LEVOTHYROXINE [Concomitant]
  12. GLUCOPHAGE [Concomitant]
  13. SEROQUEL [Concomitant]
  14. MULTIVITAMIN [Concomitant]

REACTIONS (1)
  - No therapeutic response [Unknown]
